FAERS Safety Report 5673750-7 (Version None)
Quarter: 2008Q1

REPORT INFORMATION
  Report Type: 
  Country: None (occurrence: None)
  Receive Date: 20080319
  Receipt Date: 20080310
  Transmission Date: 20080703
  Serious: Yes (Death)
  Sender: FDA-Public Use
  Company Number: PL-PFIZER INC-2008018211

PATIENT
  Sex: Male
  Weight: 64 kg

DRUGS (14)
  1. IRINOTECAN HCL [Suspect]
     Indication: COLORECTAL CANCER
     Route: 042
  2. BLINDED SU11248 (SU011248) [Suspect]
     Indication: COLORECTAL CANCER
     Route: 048
  3. FLUOROURACIL [Suspect]
     Indication: COLORECTAL CANCER
     Route: 042
  4. FLUOROURACIL [Suspect]
     Route: 042
  5. LEUCOVORIN CALCIUM [Suspect]
     Indication: COLORECTAL CANCER
     Route: 042
  6. ONDANSETRON [Concomitant]
     Indication: PROPHYLAXIS
  7. METOCLOPRAMIDE [Concomitant]
     Indication: PROPHYLAXIS
  8. OMEPRAZOLE [Concomitant]
     Indication: PROPHYLAXIS
  9. FENTANYL [Concomitant]
     Indication: PAIN
     Dosage: FREQ:25UG/HOUR
  10. KETOPROFEN [Concomitant]
     Indication: PAIN
     Dates: start: 20080204, end: 20080207
  11. METRONIDAZOLE HCL [Concomitant]
     Indication: DIARRHOEA
  12. TIANEPTINE [Concomitant]
     Indication: DEPRESSION
  13. ATROPINE [Concomitant]
     Indication: PREMEDICATION
     Dates: start: 20080206, end: 20080206
  14. TRAMADOL HCL [Concomitant]
     Indication: PAIN

REACTIONS (1)
  - DEATH [None]
